FAERS Safety Report 10384856 (Version 1)
Quarter: 2014Q3

REPORT INFORMATION
  Report Type: Spontaneous
  Country: GB (occurrence: None)
  Receive Date: 20140812
  Receipt Date: 20140812
  Transmission Date: 20150326
  Serious: Yes (Hospitalization)
  Sender: FDA-Public Use
  Company Number: AUR-APL-2014-08274

PATIENT
  Age: 70 Year
  Sex: Male

DRUGS (6)
  1. ATORVASTATIN [Concomitant]
     Active Substance: ATORVASTATIN
  2. FELODIPINE. [Concomitant]
     Active Substance: FELODIPINE
  3. NAPROXEN 500MG (NAPROXEN) UNKNOWN, 500MG [Suspect]
     Active Substance: NAPROXEN
     Indication: BACK PAIN
     Route: 048
     Dates: start: 20140709, end: 20140714
  4. CANDESARTAN [Concomitant]
     Active Substance: CANDESARTAN
  5. TAMSULOSIN [Concomitant]
     Active Substance: TAMSULOSIN
  6. HYLO-TEAR (HYALURONIC ACID) [Concomitant]

REACTIONS (5)
  - Dizziness postural [None]
  - Vomiting [None]
  - Haematemesis [None]
  - Faeces discoloured [None]
  - Dizziness [None]

NARRATIVE: CASE EVENT DATE: 20140712
